FAERS Safety Report 9915644 (Version 1)
Quarter: 2014Q1

REPORT INFORMATION
  Report Type: Spontaneous
  Country: US (occurrence: None)
  Receive Date: 20140219
  Receipt Date: 20140219
  Transmission Date: 20141002
  Serious: Yes (Hospitalization)
  Sender: FDA-Public Use
  Company Number: None

PATIENT
  Age: 72 Year
  Sex: Female
  Weight: 72.58 kg

DRUGS (2)
  1. LISINOPRIL HCTZ [Suspect]
     Indication: HYPERTENSION
     Route: 048
  2. METFORMIN [Concomitant]

REACTIONS (3)
  - Throat tightness [None]
  - Middle insomnia [None]
  - Dyspnoea [None]
